FAERS Safety Report 4551390-0 (Version None)
Quarter: 2005Q1

REPORT INFORMATION
  Report Type: 
  Country: None (occurrence: None)
  Receive Date: 20050113
  Receipt Date: 20050104
  Transmission Date: 20050727
  Serious: Yes (Hospitalization)
  Sender: FDA-Public Use
  Company Number: 200510115US

PATIENT
  Age: 20 Year
  Sex: Female

DRUGS (3)
  1. KETEK [Suspect]
     Indication: BRONCHITIS
     Dosage: DOSE: 400 (2 TABLETABLETS)
     Route: 048
     Dates: start: 20041229
  2. COMBIVENT [Concomitant]
     Dosage: DOSE: UNK
  3. MUCINEX [Concomitant]
     Dosage: DOSE: UNK

REACTIONS (6)
  - CHEST PAIN [None]
  - DEHYDRATION [None]
  - DYSPNOEA [None]
  - ELECTROCARDIOGRAM QT PROLONGED [None]
  - PALPITATIONS [None]
  - TACHYCARDIA [None]
